FAERS Safety Report 5220732-5 (Version None)
Quarter: 2007Q1

REPORT INFORMATION
  Report Type: 
  Country: None (occurrence: None)
  Receive Date: 20070126
  Receipt Date: 20070118
  Transmission Date: 20070707
  Serious: Yes (Hospitalization)
  Sender: FDA-Public Use
  Company Number: FR-ROCHE-468319

PATIENT
  Age: 27 Year
  Sex: Female
  Weight: 85 kg

DRUGS (2)
  1. ROACCUTANE [Suspect]
     Indication: DRUG USE FOR UNKNOWN INDICATION
     Dosage: PROGRESSIVE DOSE UNTIL 60 MG PER DAY.
     Route: 065
  2. ROACCUTANE [Suspect]
     Route: 065

REACTIONS (1)
  - ANKYLOSING SPONDYLITIS [None]
